FAERS Safety Report 5606734-5 (Version None)
Quarter: 2008Q1

REPORT INFORMATION
  Report Type: 
  Country: None (occurrence: None)
  Receive Date: 20080129
  Receipt Date: 20080117
  Transmission Date: 20080703
  Serious: Yes (Hospitalization)
  Sender: FDA-Public Use
  Company Number: AU-PFIZER INC-2008006130

PATIENT
  Sex: Female

DRUGS (3)
  1. CHANTIX [Suspect]
  2. VENTOLIN [Concomitant]
     Indication: EMPHYSEMA
  3. FLIXOTAIDE [Concomitant]
     Indication: EMPHYSEMA

REACTIONS (1)
  - MYALGIA [None]
